FAERS Safety Report 15535521 (Version 1)
Quarter: 2018Q4

REPORT INFORMATION
  Report Type: Spontaneous
  Country: US (occurrence: US)
  Receive Date: 20181022
  Receipt Date: 20181022
  Transmission Date: 20190205
  Serious: No
  Sender: FDA-Public Use
  Company Number: US-TEVA-2018-US-967470

PATIENT
  Sex: Female

DRUGS (1)
  1. AMOXICILLIN TEVA [Suspect]
     Active Substance: AMOXICILLIN
     Dosage: WHITE TABLET.
     Dates: start: 2013

REACTIONS (4)
  - Hypersensitivity [Unknown]
  - Urticaria [Unknown]
  - Rash [Unknown]
  - Pruritus [Unknown]
